FAERS Safety Report 15606523 (Version 8)
Quarter: 2021Q3

REPORT INFORMATION
  Report Type: Spontaneous
  Country: ES (occurrence: ES)
  Receive Date: 20181112
  Receipt Date: 20210716
  Transmission Date: 20211014
  Serious: Yes (Life-Threatening, Hospitalization)
  Sender: FDA-Public Use
  Company Number: ES-009507513-1811ESP003026

PATIENT
  Age: 78 Year
  Sex: Female

DRUGS (2)
  1. ERTAPENEM SODIUM [Suspect]
     Active Substance: ERTAPENEM SODIUM
     Indication: ARTERIOVENOUS FISTULA SITE INFECTION
     Dosage: 500 MILLIGRAM, DAILY
     Route: 042
     Dates: start: 20180801, end: 20180804
  2. LEVETIRACETAM. [Concomitant]
     Active Substance: LEVETIRACETAM
     Indication: PARTIAL SEIZURES

REACTIONS (4)
  - Confusional state [Recovered/Resolved]
  - Product use in unapproved indication [Unknown]
  - Status epilepticus [Recovered/Resolved]
  - Speech disorder [Recovered/Resolved]

NARRATIVE: CASE EVENT DATE: 20180801
